FAERS Safety Report 7850247-7 (Version None)
Quarter: 2011Q4

REPORT INFORMATION
  Report Type: 
  Country: None (occurrence: None)
  Receive Date: 20111026
  Receipt Date: 20111025
  Transmission Date: 20120403
  Serious: Yes (Other)
  Sender: FDA-Public Use
  Company Number: GB-GENZYME-CLOF-1001728

PATIENT
  Sex: Male
  Weight: 83 kg

DRUGS (6)
  1. GAVISCON [Concomitant]
     Indication: PROPHYLAXIS
     Dosage: 10 ML, QID
     Route: 048
     Dates: start: 20080512, end: 20080602
  2. ALLOPURINOL [Concomitant]
     Indication: PROPHYLAXIS
     Dosage: 300 MG, QD
     Route: 048
     Dates: start: 20080427, end: 20080516
  3. COTRIM [Concomitant]
     Indication: PROPHYLAXIS
     Dosage: 2.25 G, QD
     Route: 042
     Dates: start: 20110514, end: 20110522
  4. DAUNORUBICIN HCL [Suspect]
     Indication: ACUTE MYELOID LEUKAEMIA
     Dosage: 100 MG, ON DAYS 1, 3, AND 5
     Route: 065
     Dates: start: 20080426, end: 20080430
  5. EVOLTRA [Suspect]
     Indication: ACUTE MYELOID LEUKAEMIA
     Dosage: 40 MG, QDX5
     Route: 065
     Dates: start: 20080426, end: 20080430
  6. ACYCLOVIR [Concomitant]
     Indication: PROPHYLAXIS
     Dosage: 200 MG, QID
     Route: 048
     Dates: start: 20080505, end: 20080610

REACTIONS (3)
  - CARDIAC FAILURE [None]
  - FUNGAL INFECTION [None]
  - ATRIAL FIBRILLATION [None]
